FAERS Safety Report 17251029 (Version 1)
Quarter: 2020Q1

REPORT INFORMATION
  Report Type: Spontaneous
  Country: ES (occurrence: ES)
  Receive Date: 20200109
  Receipt Date: 20200109
  Transmission Date: 20200409
  Serious: Yes (Other)
  Sender: FDA-Public Use
  Company Number: ES-CELLTRION INC.-2019ES027656

PATIENT

DRUGS (1)
  1. INFLIXIMAB (UNKNOWN) [Suspect]
     Active Substance: INFLIXIMAB
     Indication: UVEITIS
     Dosage: 5 MG/KG, UNK (3-5 MG/KG AT 0, 2, AND 6 WEEKS AND EVERY 4-8 WEEKS THEREAFTER)
     Route: 042

REACTIONS (2)
  - Product use in unapproved indication [Unknown]
  - Mouth ulceration [Unknown]
